FAERS Safety Report 5740761-2 (Version None)
Quarter: 2008Q2

REPORT INFORMATION
  Report Type: 
  Country: None (occurrence: None)
  Receive Date: 20080516
  Receipt Date: 20080507
  Transmission Date: 20081010
  Serious: Yes (Death, Hospitalization, Other)
  Sender: FDA-Public Use
  Company Number: US-PFIZER INC-2008023323

PATIENT
  Age: 18 Year
  Sex: Female

DRUGS (5)
  1. GEODON [Suspect]
     Indication: MENTAL RETARDATION
  2. GEODON [Suspect]
     Indication: MENTAL DISORDER
  3. GEODON [Suspect]
     Indication: AUTISM SPECTRUM DISORDER
  4. RISPERDAL [Concomitant]
     Route: 048
  5. SERTRALINE [Concomitant]
     Dosage: DAILY DOSE:100MG
     Route: 048

REACTIONS (2)
  - DEATH [None]
  - PYREXIA [None]
